FAERS Safety Report 10512389 (Version 2)
Quarter: 2014Q4

REPORT INFORMATION
  Report Type: Spontaneous
  Country: RU (occurrence: RU)
  Receive Date: 20141010
  Receipt Date: 20141010
  Transmission Date: 20150528
  Serious: Yes (Hospitalization)
  Sender: FDA-Public Use
  Company Number: RU-009507513-1409RUS013969

PATIENT
  Age: 36 Year
  Sex: Female
  Weight: 60 kg

DRUGS (1)
  1. IMPLANON [Suspect]
     Active Substance: ETONOGESTREL
     Indication: CONTRACEPTION
     Dosage: PER 3 YEARS
     Route: 059
     Dates: start: 20130926, end: 201409

REACTIONS (6)
  - Uterine leiomyoma [Recovered/Resolved]
  - Uterine polyp [Recovered/Resolved]
  - Bartholin^s cyst [Recovered/Resolved]
  - Bloody discharge [Recovered/Resolved]
  - Ovarian cyst [Recovered/Resolved]
  - Hysteroscopy [Recovered/Resolved]

NARRATIVE: CASE EVENT DATE: 201309
